FAERS Safety Report 23732031 (Version 2)
Quarter: 2024Q2

REPORT INFORMATION
  Report Type: Report from Study
  Country: AR (occurrence: AR)
  Receive Date: 20240411
  Receipt Date: 20240501
  Transmission Date: 20240715
  Serious: Yes (Hospitalization, Other)
  Sender: FDA-Public Use
  Company Number: AR-002147023-NVSC2024AR075532

PATIENT
  Age: 74 Year
  Sex: Male

DRUGS (5)
  1. TAFINLAR [Suspect]
     Active Substance: DABRAFENIB MESYLATE
     Indication: Thyroid cancer
     Dosage: 150 MG, BID
     Route: 065
     Dates: start: 202308
  2. TAFINLAR [Suspect]
     Active Substance: DABRAFENIB MESYLATE
     Dosage: 75 MG, TID (3 OF 75 MG, A DAY, MORNING AND NIGHT)
     Route: 048
     Dates: start: 202308
  3. TAFINLAR [Suspect]
     Active Substance: DABRAFENIB MESYLATE
     Dosage: 75 MG, BID (2 OF 75 MG, A DAY, MORNING AND NIGHT)
     Route: 065
     Dates: start: 20240415
  4. LEVOTHYROXINE [Concomitant]
     Active Substance: LEVOTHYROXINE\LEVOTHYROXINE SODIUM
     Indication: Product used for unknown indication
     Dosage: 200 MG (MONDAY THROUGH FRIDAY)
     Route: 065
  5. LEVOTHYROXINE [Concomitant]
     Active Substance: LEVOTHYROXINE\LEVOTHYROXINE SODIUM
     Dosage: 225 MG (SATURDAY AND SUNDAY)
     Route: 065

REACTIONS (9)
  - Anaemia [Recovering/Resolving]
  - Decreased appetite [Unknown]
  - Haematocrit abnormal [Recovering/Resolving]
  - Puncture site bruise [Not Recovered/Not Resolved]
  - Pruritus [Recovered/Resolved]
  - Diarrhoea [Not Recovered/Not Resolved]
  - Gastrointestinal haemorrhage [Recovering/Resolving]
  - Malaise [Recovering/Resolving]
  - Gastrointestinal ulcer [Unknown]

NARRATIVE: CASE EVENT DATE: 20230901
